FAERS Safety Report 4279311-9 (Version None)
Quarter: 2004Q1

REPORT INFORMATION
  Report Type: 
  Country: None (occurrence: None)
  Receive Date: 20040127
  Receipt Date: 20031226
  Transmission Date: 20041129
  Serious: Yes (Hospitalization)
  Sender: FDA-Public Use
  Company Number: JP-ROCHE-354865

PATIENT
  Age: 54 Year
  Sex: Female
  Weight: 51.7 kg

DRUGS (8)
  1. ROCEPHIN [Suspect]
     Indication: INFECTION
     Route: 041
     Dates: start: 20031101, end: 20031104
  2. VOLTAREN [Concomitant]
     Indication: PAIN
     Route: 054
     Dates: start: 20031101, end: 20031102
  3. ZITHROMAX [Concomitant]
     Indication: INFECTION
     Route: 048
     Dates: start: 20031031, end: 20031102
  4. CELESTAMINE TAB [Concomitant]
     Indication: OEDEMA
     Route: 048
     Dates: start: 20031031, end: 20031104
  5. TRANSAMIN [Concomitant]
     Indication: SWELLING
     Route: 048
     Dates: start: 20031102, end: 20031104
  6. IBUPROFEN [Concomitant]
     Indication: UPPER RESPIRATORY TRACT INFLAMMATION
     Route: 048
     Dates: start: 20031031, end: 20031104
  7. MUCODYNE [Concomitant]
     Route: 048
     Dates: start: 20031031, end: 20031104
  8. DECADRON [Concomitant]
     Indication: OEDEMA
     Route: 055
     Dates: start: 20031101, end: 20031104

REACTIONS (6)
  - ABDOMINAL TENDERNESS [None]
  - ALANINE AMINOTRANSFERASE INCREASED [None]
  - ASPARTATE AMINOTRANSFERASE INCREASED [None]
  - BLOOD ALKALINE PHOSPHATASE INCREASED [None]
  - BLOOD LACTATE DEHYDROGENASE INCREASED [None]
  - LIVER DISORDER [None]
